FAERS Safety Report 8715969 (Version 3)
Quarter: 2012Q4

REPORT INFORMATION
  Report Type: Spontaneous
  Country: JP (occurrence: None)
  Receive Date: 20120725
  Receipt Date: 20120830
  Transmission Date: 20130627
  Serious: Yes (Other)
  Sender: FDA-Public Use
  Company Number: JP-2012-15839

PATIENT
  Age: 80 Year
  Sex: Male
  Weight: 48 kg

DRUGS (10)
  1. SAMSCA [Suspect]
     Indication: FLUID RETENTION
     Dosage: 3.75 MG MILLIGRAM(S), QAM, ORAL
     Route: 048
     Dates: start: 20120618
  2. BAYASPIRN (ACETYLSALICYLIC ACID) [Concomitant]
  3. ADALAT [Concomitant]
  4. LASIX [Concomitant]
  5. DEPAS (ETIZOLAM) [Concomitant]
  6. TAKEPRON (LANSOPRAZOLE) ORODISPERISBLE [Concomitant]
  7. BROZOM (BROTIZOLAM) [Concomitant]
  8. BIOFERMIN R (STREPTOCOCCUS FAECALIS) [Concomitant]
  9. MINOCYCLINE HYDROCHLORIDE [Concomitant]
  10. CELECOXIB [Concomitant]

REACTIONS (5)
  - BLOOD UREA INCREASED [None]
  - PURPURA [None]
  - PYREXIA [None]
  - INFECTION [None]
  - DRUG HYPERSENSITIVITY [None]
